FAERS Safety Report 13502233 (Version 1)
Quarter: 2017Q2

REPORT INFORMATION
  Report Type: Spontaneous
  Country: US (occurrence: US)
  Receive Date: 20170502
  Receipt Date: 20170502
  Transmission Date: 20170830
  Serious: Yes (Other)
  Sender: FDA-Public Use
  Company Number: US-ORION CORPORATION ORION PHARMA-NADO2017-0001

PATIENT
  Age: 19 Year
  Sex: Female

DRUGS (3)
  1. NADOLOL. [Suspect]
     Active Substance: NADOLOL
     Route: 065
  2. ATENOLOL. [Suspect]
     Active Substance: ATENOLOL
     Route: 065
  3. METOPROLOL. [Suspect]
     Active Substance: METOPROLOL
     Route: 065

REACTIONS (2)
  - Drug intolerance [Unknown]
  - Major depression [Unknown]
